FAERS Safety Report 7780853-X (Version None)
Quarter: 2011Q3

REPORT INFORMATION
  Report Type: 
  Country: None (occurrence: None)
  Receive Date: 20110927
  Receipt Date: 20110921
  Transmission Date: 20111222
  Serious: No
  Sender: FDA-Public Use
  Company Number: US-PFIZER INC-2011224750

PATIENT
  Sex: Female
  Weight: 55.8 kg

DRUGS (4)
  1. LYRICA [Suspect]
     Indication: SPINAL COLUMN STENOSIS
     Dosage: 50 MG, 1X/DAY
     Route: 048
     Dates: start: 20110912
  2. LYRICA [Suspect]
     Indication: FIBROMYALGIA
  3. MIRTAZAPINE [Concomitant]
     Indication: DEPRESSION
     Dosage: UNK
  4. DIAZEPAM [Concomitant]
     Indication: DEPRESSION
     Dosage: 5 MG, UNK

REACTIONS (3)
  - WEIGHT INCREASED [None]
  - MALAISE [None]
  - EXERCISE TOLERANCE DECREASED [None]
